FAERS Safety Report 12948078 (Version 1)
Quarter: 2016Q4

REPORT INFORMATION
  Report Type: Spontaneous
  Country: CN (occurrence: CN)
  Receive Date: 20161117
  Receipt Date: 20161117
  Transmission Date: 20170207
  Serious: Yes (Death)
  Sender: FDA-Public Use
  Company Number: CN-ROCHE-1855998

PATIENT

DRUGS (10)
  1. ATORVASTATIN CALCIUM. [Concomitant]
     Active Substance: ATORVASTATIN CALCIUM
     Indication: ACUTE MYOCARDIAL INFARCTION
     Dosage: BEFORE THROMBOLYSIS
     Route: 048
  2. METOPROLOL. [Concomitant]
     Active Substance: METOPROLOL
     Indication: ACUTE MYOCARDIAL INFARCTION
     Dosage: BEFORE THROMBOLYSIS
     Route: 048
  3. CLOPIDOGREL [Concomitant]
     Active Substance: CLOPIDOGREL BISULFATE
     Indication: ACUTE MYOCARDIAL INFARCTION
     Dosage: BEFORE THROMBOLYSIS
     Route: 048
  4. LOW MOLECULAR HEPARIN [Concomitant]
     Active Substance: UNSPECIFIED INGREDIENT
     Dosage: 5000U/10000U PER DAY FOR FIRST 5 DAYS AND THEN 6 TO 7 DAYS CHANGE TO 5000U PER DAY
     Route: 058
  5. ACTILYSE [Suspect]
     Active Substance: ALTEPLASE
     Route: 041
  6. ASPIRIN. [Concomitant]
     Active Substance: ASPIRIN
     Indication: ACUTE MYOCARDIAL INFARCTION
     Dosage: BEFORE THROMBOLYSIS
     Route: 048
  7. CLOPIDOGREL [Concomitant]
     Active Substance: CLOPIDOGREL BISULFATE
     Dosage: AFTER THROMBOLYSIS
     Route: 048
  8. ACTILYSE [Suspect]
     Active Substance: ALTEPLASE
     Indication: ACUTE MYOCARDIAL INFARCTION
     Dosage: FIRST 15 MG BY IV INJECTION FOR 15 MINUTES, THEN 50 MG INTRAVENOUS DRIP  IN 30 MINUTES, THE LAST 35
     Route: 042
  9. ACTILYSE [Suspect]
     Active Substance: ALTEPLASE
     Route: 041
  10. ASPIRIN. [Concomitant]
     Active Substance: ASPIRIN
     Dosage: AFTER THROMBOLYSIS
     Route: 048

REACTIONS (1)
  - Haemorrhage [Fatal]
